FAERS Safety Report 18813133 (Version 1)
Quarter: 2021Q1

REPORT INFORMATION
  Report Type: Spontaneous
  Country: US (occurrence: US)
  Receive Date: 20210131
  Receipt Date: 20210131
  Transmission Date: 20210419
  Serious: Yes (Death, Other)
  Sender: FDA-Public Use
  Company Number: US-PURDUE-USA-2020-0202053

PATIENT
  Age: 42 Year
  Sex: Female

DRUGS (1)
  1. OXYCONTIN [Suspect]
     Active Substance: OXYCODONE HYDROCHLORIDE
     Indication: GASTROINTESTINAL DISORDER
     Dosage: UNK
     Route: 048

REACTIONS (14)
  - Colon operation [Unknown]
  - Drug dependence [Unknown]
  - Alopecia [Unknown]
  - Respiratory distress [None]
  - Tooth loss [Unknown]
  - Overdose [Unknown]
  - Gastrointestinal tube insertion [Unknown]
  - Pain [Unknown]
  - Constipation [Unknown]
  - Septic shock [Fatal]
  - Respiratory failure [Fatal]
  - Surgery [Unknown]
  - Weight decreased [Unknown]
  - Tracheostomy [Unknown]

NARRATIVE: CASE EVENT DATE: 20170908
